FAERS Safety Report 6679750-2 (Version None)
Quarter: 2010Q2

REPORT INFORMATION
  Report Type: 
  Country: None (occurrence: None)
  Receive Date: 20100413
  Receipt Date: 20100408
  Transmission Date: 20101027
  Serious: Yes (Life-Threatening, Hospitalization)
  Sender: FDA-Public Use
  Company Number: DE-EISAI INC.-E2020-06086-SPO-DE

PATIENT
  Sex: Female

DRUGS (7)
  1. ARICEPT [Suspect]
     Indication: DEMENTIA ALZHEIMER'S TYPE
     Route: 048
     Dates: start: 20091022, end: 20091028
  2. SEROQUEL [Suspect]
     Route: 048
     Dates: start: 20090930, end: 20091025
  3. SEROQUEL [Suspect]
     Route: 048
     Dates: start: 20091026, end: 20091103
  4. SEROQUEL [Suspect]
     Route: 048
     Dates: start: 20091104
  5. REMERGIL [Suspect]
     Route: 048
     Dates: start: 20090930, end: 20091026
  6. PANTOPRAZOLE SODIUM [Concomitant]
     Route: 048
     Dates: start: 20091002
  7. IBUPROFEN TABLETS [Concomitant]
     Route: 048
     Dates: start: 20091002, end: 20091124

REACTIONS (4)
  - BLOOD PRESSURE INCREASED [None]
  - CONVULSION [None]
  - PARASYSTOLE [None]
  - RESPIRATORY ARREST [None]
